FAERS Safety Report 9161459 (Version 1)
Quarter: 2013Q1

REPORT INFORMATION
  Report Type: Spontaneous
  Country: US (occurrence: US)
  Receive Date: 20130313
  Receipt Date: 20130313
  Transmission Date: 20140127
  Serious: No
  Sender: FDA-Public Use
  Company Number: US-009507513-1303USA003637

PATIENT
  Age: 65 Year
  Sex: Female

DRUGS (1)
  1. PROVENTIL [Suspect]
     Indication: HYPERSENSITIVITY
     Route: 055

REACTIONS (5)
  - Drug ineffective [Unknown]
  - Expired drug administered [Unknown]
  - Rhinorrhoea [Not Recovered/Not Resolved]
  - Cough [Not Recovered/Not Resolved]
  - Paraesthesia oral [Unknown]
